FAERS Safety Report 25225656 (Version 1)
Quarter: 2025Q2

REPORT INFORMATION
  Report Type: Spontaneous
  Country: CN (occurrence: CN)
  Receive Date: 20250422
  Receipt Date: 20250422
  Transmission Date: 20250716
  Serious: Yes (Hospitalization, Other)
  Sender: PFIZER
  Company Number: CN-PFIZER INC-PV202400169970

PATIENT
  Age: 44 Year
  Sex: Female
  Weight: 49 kg

DRUGS (20)
  1. EPIRUBICIN HYDROCHLORIDE [Suspect]
     Active Substance: EPIRUBICIN HYDROCHLORIDE
     Indication: Breast cancer
     Dosage: 100.000 MG, 1X/DAY
     Route: 041
     Dates: start: 20241212, end: 20241212
  2. EPIRUBICIN HYDROCHLORIDE [Suspect]
     Active Substance: EPIRUBICIN HYDROCHLORIDE
     Indication: Chemotherapy
     Dosage: 100 MG, 1X/DAY
     Route: 041
     Dates: start: 20250104, end: 20250104
  3. EPIRUBICIN HYDROCHLORIDE [Suspect]
     Active Substance: EPIRUBICIN HYDROCHLORIDE
     Dosage: 100 MG, 1X/DAY
     Route: 041
     Dates: start: 20250124, end: 20250124
  4. EPIRUBICIN HYDROCHLORIDE [Suspect]
     Active Substance: EPIRUBICIN HYDROCHLORIDE
     Dosage: 100 MG, 1X/DAY
     Route: 041
     Dates: start: 20250404, end: 20250404
  5. DOCETAXEL [Suspect]
     Active Substance: DOCETAXEL
     Indication: Breast cancer
     Dosage: 100.000 MG, 1X/DAY
     Route: 041
     Dates: start: 20241212, end: 20241212
  6. DOCETAXEL [Suspect]
     Active Substance: DOCETAXEL
     Indication: Chemotherapy
     Dosage: 100 MG, 1X/DAY
     Route: 041
     Dates: start: 20250104, end: 20250104
  7. DOCETAXEL [Suspect]
     Active Substance: DOCETAXEL
     Dosage: 100 MG, 1X/DAY
     Route: 041
     Dates: start: 20250124, end: 20250124
  8. DOCETAXEL [Suspect]
     Active Substance: DOCETAXEL
     Dosage: 100 MG, 1X/DAY
     Route: 041
     Dates: start: 20250404, end: 20250404
  9. DEXTROSE [Concomitant]
     Active Substance: DEXTROSE MONOHYDRATE
     Indication: Vehicle solution use
     Dosage: 250.000 ML, 1X/DAY
     Route: 041
     Dates: start: 20241212, end: 20241212
  10. DEXTROSE [Concomitant]
     Active Substance: DEXTROSE MONOHYDRATE
     Dosage: 250 ML, 1X/DAY
     Route: 041
     Dates: start: 20250104, end: 20250104
  11. DEXTROSE [Concomitant]
     Active Substance: DEXTROSE MONOHYDRATE
     Dosage: 250 ML, 1X/DAY
     Route: 041
     Dates: start: 20250104, end: 20250104
  12. DEXTROSE [Concomitant]
     Active Substance: DEXTROSE MONOHYDRATE
     Dosage: 250 ML, 1X/DAY
     Route: 041
     Dates: start: 20250124, end: 20250124
  13. DEXTROSE [Concomitant]
     Active Substance: DEXTROSE MONOHYDRATE
     Dosage: 250 ML, 1X/DAY
     Route: 041
     Dates: start: 20250124, end: 20250124
  14. DEXTROSE [Concomitant]
     Active Substance: DEXTROSE MONOHYDRATE
     Dosage: 250 ML, 1X/DAY
     Route: 041
     Dates: start: 20250404, end: 20250404
  15. DEXTROSE [Concomitant]
     Active Substance: DEXTROSE MONOHYDRATE
     Dosage: 250 ML, 1X/DAY
     Route: 041
     Dates: start: 20250404, end: 20250404
  16. SODIUM CHLORIDE [Concomitant]
     Active Substance: SODIUM CHLORIDE
     Indication: Vehicle solution use
     Dosage: 100 ML, 1X/DAY
     Route: 041
     Dates: start: 20250404, end: 20250405
  17. GRANULOCYTE COLONY-STIMULATING FACTOR NOS [Concomitant]
     Active Substance: GRANULOCYTE COLONY-STIMULATING FACTOR NOS
     Indication: White blood cell count
     Dosage: 150 UG, 1X/DAY
     Route: 058
     Dates: start: 20250103, end: 20250103
  18. ONDANSETRON HYDROCHLORIDE [Concomitant]
     Active Substance: ONDANSETRON HYDROCHLORIDE
     Indication: Prophylaxis
     Dosage: 8 MG, 1X/DAY
     Route: 042
     Dates: start: 20250404, end: 20250408
  19. DIPHENHYDRAMINE HYDROCHLORIDE [Concomitant]
     Active Substance: DIPHENHYDRAMINE HYDROCHLORIDE
     Indication: Prophylaxis
     Dosage: 20 MG, 1X/DAY
     Route: 030
     Dates: start: 20250404, end: 20250404
  20. CIMETIDINE [Concomitant]
     Active Substance: CIMETIDINE
     Indication: Prophylaxis
     Dosage: 0.4 G, 1X/DAY
     Route: 041
     Dates: start: 20250404, end: 20250405

REACTIONS (7)
  - White blood cell count decreased [Recovering/Resolving]
  - Neutrophil count decreased [Recovering/Resolving]
  - Platelet count decreased [Recovering/Resolving]
  - Dizziness [Recovering/Resolving]
  - Chest discomfort [Recovering/Resolving]
  - Nausea [Recovering/Resolving]
  - Vomiting [Recovering/Resolving]

NARRATIVE: CASE EVENT DATE: 20241221
